FAERS Safety Report 17830249 (Version 1)
Quarter: 2020Q2

REPORT INFORMATION
  Report Type: Report from Study
  Country: KR (occurrence: KR)
  Receive Date: 20200527
  Receipt Date: 20200527
  Transmission Date: 20200714
  Serious: Yes (Hospitalization)
  Sender: FDA-Public Use
  Company Number: KR-GILEAD-2020-0468355

PATIENT
  Sex: Female
  Weight: 48.7 kg

DRUGS (4)
  1. FEBURIC [Concomitant]
     Active Substance: FEBUXOSTAT
     Indication: SYSTEMIC LUPUS ERYTHEMATOSUS
     Dosage: UNK
     Dates: start: 20161012
  2. KALITAKER [Concomitant]
     Indication: SYSTEMIC LUPUS ERYTHEMATOSUS
     Dosage: UNK
     Dates: start: 20170327
  3. LOSARTAN. [Concomitant]
     Active Substance: LOSARTAN
     Indication: SYSTEMIC LUPUS ERYTHEMATOSUS
     Dosage: UNK
     Dates: start: 20181004
  4. TENOFOVIR ALAFENAMIDE [Suspect]
     Active Substance: TENOFOVIR ALAFENAMIDE
     Indication: HEPATITIS B
     Dosage: 25 MG, QD
     Route: 048
     Dates: start: 20181018

REACTIONS (1)
  - Otolithiasis [Unknown]

NARRATIVE: CASE EVENT DATE: 201909
